FAERS Safety Report 24680340 (Version 1)
Quarter: 2024Q4

REPORT INFORMATION
  Report Type: Spontaneous
  Country: US (occurrence: US)
  Receive Date: 20241129
  Receipt Date: 20241129
  Transmission Date: 20250115
  Serious: No
  Sender: ROCHE
  Company Number: US-ROCHE-10000137305

PATIENT
  Sex: Female
  Weight: 92.53 kg

DRUGS (1)
  1. KADCYLA [Suspect]
     Active Substance: ADO-TRASTUZUMAB EMTANSINE
     Indication: Breast cancer metastatic
     Dosage: DOSE 2.5 MG/KG
     Route: 065

REACTIONS (2)
  - Off label use [Unknown]
  - Ejection fraction decreased [Recovered/Resolved]
